FAERS Safety Report 12850466 (Version 3)
Quarter: 2016Q4

REPORT INFORMATION
  Report Type: Spontaneous
  Country: CN (occurrence: CN)
  Receive Date: 20161014
  Receipt Date: 20161109
  Transmission Date: 20170207
  Serious: Yes (Hospitalization)
  Sender: FDA-Public Use
  Company Number: CN-ABBVIE-16P-035-1751636-00

PATIENT
  Age: 20 Year
  Sex: Female
  Weight: 49 kg

DRUGS (9)
  1. SPIRONOLACTONE. [Concomitant]
     Active Substance: SPIRONOLACTONE
     Indication: PULMONARY ARTERIAL HYPERTENSION
     Dates: start: 20130520
  2. SPIRONOLACTONE. [Concomitant]
     Active Substance: SPIRONOLACTONE
     Indication: COR PULMONALE
  3. FUROSEMIDE. [Concomitant]
     Active Substance: FUROSEMIDE
     Indication: ACUTE KIDNEY INJURY
     Dates: start: 20130520
  4. SILDENAFIL. [Concomitant]
     Active Substance: SILDENAFIL
     Indication: ACUTE KIDNEY INJURY
     Dates: start: 20130513
  5. ZYBAN [Suspect]
     Active Substance: BUPROPION HYDROCHLORIDE
     Indication: PULMONARY ARTERIAL HYPERTENSION
     Route: 065
     Dates: start: 20130520
  6. BEI JIAN [Concomitant]
     Indication: PRODUCT USED FOR UNKNOWN INDICATION
     Dosage: 2.34 G TDD
  7. SILDENAFIL. [Concomitant]
     Active Substance: SILDENAFIL
     Indication: PULMONARY ARTERIAL HYPERTENSION
  8. CEFUROXIME. [Concomitant]
     Active Substance: CEFUROXIME
     Indication: PULMONARY ARTERIAL HYPERTENSION
     Dates: start: 20130520
  9. POTASSIUM CHLORIDE. [Suspect]
     Active Substance: POTASSIUM CHLORIDE
     Indication: PULMONARY ARTERIAL HYPERTENSION
     Route: 065
     Dates: start: 20130520

REACTIONS (6)
  - Hyperuricaemia [Recovered/Resolved]
  - Acute kidney injury [Recovering/Resolving]
  - Chest pain [Recovered/Resolved]
  - Cardiac failure [Recovering/Resolving]
  - Cor pulmonale [Recovering/Resolving]
  - Pulmonary arterial hypertension [Recovering/Resolving]

NARRATIVE: CASE EVENT DATE: 20160613
